FAERS Safety Report 18174332 (Version 1)
Quarter: 2020Q3

REPORT INFORMATION
  Report Type: Spontaneous
  Country: US (occurrence: US)
  Receive Date: 20200819
  Receipt Date: 20200819
  Transmission Date: 20201103
  Serious: Yes (Hospitalization)
  Sender: FDA-Public Use
  Company Number: None

PATIENT
  Sex: Female

DRUGS (1)
  1. VERZENIO [Suspect]
     Active Substance: ABEMACICLIB
     Indication: BREAST CANCER FEMALE
     Route: 048
     Dates: start: 20200321

REACTIONS (6)
  - Therapy interrupted [None]
  - Vomiting projectile [None]
  - Alopecia [None]
  - Loss of consciousness [None]
  - Diarrhoea [None]
  - Dehydration [None]
